FAERS Safety Report 21305676 (Version 1)
Quarter: 2022Q3

REPORT INFORMATION
  Report Type: Spontaneous
  Country: CN (occurrence: CN)
  Receive Date: 20220908
  Receipt Date: 20220908
  Transmission Date: 20221027
  Serious: Yes (Other)
  Sender: FDA-Public Use
  Company Number: None

PATIENT
  Age: 55 Year
  Sex: Female
  Weight: 54 kg

DRUGS (4)
  1. CYCLOPHOSPHAMIDE [Suspect]
     Active Substance: CYCLOPHOSPHAMIDE
     Indication: Breast cancer female
     Dosage: 0.8 G ONCE DAILY, DILUTED WITH 250 ML OF 0.9% NS INJECTION
     Route: 041
     Dates: start: 20220710, end: 20220710
  2. SODIUM CHLORIDE [Suspect]
     Active Substance: SODIUM CHLORIDE
     Indication: Medication dilution
     Dosage: 250 ML, QD, DILUTED IN 0.8 G OF CYCLOPHOSPHAMIDE INJECTION
     Route: 041
     Dates: start: 20220710, end: 20220710
  3. SODIUM CHLORIDE [Suspect]
     Active Substance: SODIUM CHLORIDE
     Dosage: 250 ML, QD, DILUTED IN 140 MG OF EPIRUBICIN HYDROCHLORIDE INJECTION
     Route: 041
     Dates: start: 20220710, end: 20220710
  4. EPIRUBICIN [Suspect]
     Active Substance: EPIRUBICIN
     Indication: Breast cancer female
     Dosage: 140 MG ONCE DAILY, DILUTED IN 250 ML OF 0.9% NS INJECTION
     Route: 041
     Dates: start: 20220710, end: 20220710

REACTIONS (1)
  - Myelosuppression [Recovering/Resolving]

NARRATIVE: CASE EVENT DATE: 20220801
